FAERS Safety Report 12580919 (Version 1)
Quarter: 2016Q3

REPORT INFORMATION
  Report Type: Spontaneous
  Country: US (occurrence: US)
  Receive Date: 20160721
  Receipt Date: 20160721
  Transmission Date: 20161109
  Serious: Yes (Life-Threatening, Hospitalization, Other)
  Sender: FDA-Public Use
  Company Number: US-JNJFOC-20160712456

PATIENT

DRUGS (2)
  1. LOCAL HEMOSTATICS [Concomitant]
     Indication: HAEMOSTASIS
     Route: 061
  2. HUMAN THROMBIN [Suspect]
     Active Substance: THROMBIN HUMAN
     Indication: HAEMOSTASIS
     Route: 061

REACTIONS (19)
  - Respiratory disorder [Unknown]
  - Hypovolaemia [Unknown]
  - Sepsis [Unknown]
  - Cardiac disorder [Unknown]
  - Haemorrhage [Unknown]
  - Haematoma [Unknown]
  - Acute respiratory failure [Unknown]
  - Urinary tract disorder [Unknown]
  - Hospitalisation [Unknown]
  - Anaemia [Unknown]
  - Embolism [Unknown]
  - Venous thrombosis [Unknown]
  - Encephalopathy [Unknown]
  - Post procedural infection [Unknown]
  - Seroma [Unknown]
  - Dehydration [Unknown]
  - Procedural complication [Unknown]
  - Thrombocytopenia [Unknown]
  - Anaesthetic complication [Unknown]
